FAERS Safety Report 9613116 (Version 1)
Quarter: 2013Q4

REPORT INFORMATION
  Report Type: Spontaneous
  Country: US (occurrence: US)
  Receive Date: 20131010
  Receipt Date: 20131010
  Transmission Date: 20140711
  Serious: No
  Sender: FDA-Public Use
  Company Number: US-JNJFOC-20131001811

PATIENT
  Age: 6 Decade
  Sex: Female

DRUGS (2)
  1. INVEGA SUSTENNA [Suspect]
     Indication: SCHIZOPHRENIA
     Route: 030
  2. COGENTIN [Concomitant]
     Route: 065

REACTIONS (2)
  - Extrapyramidal disorder [Not Recovered/Not Resolved]
  - Hyperprolactinaemia [Not Recovered/Not Resolved]
